FAERS Safety Report 13461316 (Version 1)
Quarter: 2017Q2

REPORT INFORMATION
  Report Type: Spontaneous
  Country: US (occurrence: US)
  Receive Date: 20170420
  Receipt Date: 20170420
  Transmission Date: 20170830
  Serious: Yes (Hospitalization, Other)
  Sender: FDA-Public Use
  Company Number: US-ZYDUS-013158

PATIENT
  Age: 51 Year
  Sex: Female

DRUGS (3)
  1. PREGABALIN. [Suspect]
     Active Substance: PREGABALIN
     Indication: FIBROMYALGIA
     Dosage: 75 MILLIGRAM DAILY
     Dates: start: 20151229, end: 201601
  2. PARACETAMOL [Concomitant]
     Active Substance: ACETAMINOPHEN
  3. MINOCYCLINE [Suspect]
     Active Substance: MINOCYCLINE\MINOCYCLINE HYDROCHLORIDE
     Indication: PRODUCT USED FOR UNKNOWN INDICATION
     Dosage: AS NEEDED, 2-3 TIMES A MONTH
     Route: 065
     Dates: start: 2007

REACTIONS (4)
  - Back pain [Unknown]
  - Spinal fusion surgery [Unknown]
  - Pain [Unknown]
  - Pain [Unknown]

NARRATIVE: CASE EVENT DATE: 20150222
